FAERS Safety Report 10566803 (Version 1)
Quarter: 2014Q4

REPORT INFORMATION
  Report Type: Spontaneous
  Country: US (occurrence: US)
  Receive Date: 20141105
  Receipt Date: 20141105
  Transmission Date: 20150529
  Serious: No
  Sender: FDA-Public Use
  Company Number: US-009507513-1410USA009045

PATIENT
  Sex: Male

DRUGS (1)
  1. COPPERTONE KIDS [Suspect]
     Active Substance: AVOBENZONE\HOMOSALATE\OCTISALATE\OXYBENZONE
     Indication: PROPHYLAXIS AGAINST SOLAR RADIATION
     Dosage: UNK, UNKNOWN
     Route: 061

REACTIONS (2)
  - Drug ineffective [Unknown]
  - Sunburn [Unknown]
